FAERS Safety Report 7362121-3 (Version None)
Quarter: 2011Q1

REPORT INFORMATION
  Report Type: 
  Country: None (occurrence: None)
  Receive Date: 20110318
  Receipt Date: 20110311
  Transmission Date: 20110831
  Serious: Yes (Other)
  Sender: FDA-Public Use
  Company Number: US-PFIZER INC-2007036330

PATIENT
  Sex: Female

DRUGS (2)
  1. NEURONTIN [Suspect]
     Indication: PAIN IN EXTREMITY
  2. NEURONTIN [Suspect]
     Indication: THROMBOSIS
     Dosage: UNK

REACTIONS (12)
  - AFFECT LABILITY [None]
  - RENAL DISORDER [None]
  - FLUID RETENTION [None]
  - ASTHENIA [None]
  - WEIGHT INCREASED [None]
  - DRUG INEFFECTIVE FOR UNAPPROVED INDICATION [None]
  - THINKING ABNORMAL [None]
  - AMNESIA [None]
  - SUICIDAL IDEATION [None]
  - LIVER DISORDER [None]
  - CARDIAC FAILURE [None]
  - RASH [None]
